FAERS Safety Report 17805717 (Version 4)
Quarter: 2021Q1

REPORT INFORMATION
  Report Type: Report from Study
  Country: US (occurrence: US)
  Receive Date: 20200520
  Receipt Date: 20210319
  Transmission Date: 20210419
  Serious: Yes (Hospitalization)
  Sender: FDA-Public Use
  Company Number: US-SA-2019SA227295

PATIENT
  Age: 61 Year
  Sex: Female
  Weight: 55.8 kg

DRUGS (11)
  1. ISATUXIMAB [Suspect]
     Active Substance: ISATUXIMAB
     Dosage: 10 MG/KG, QW
     Route: 042
     Dates: start: 20150519, end: 20150519
  2. CALCIUM D [CALCIUM;COLECALCIFEROL] [Concomitant]
     Active Substance: CALCIUM\CHOLECALCIFEROL
     Indication: PROPHYLAXIS
     Dosage: UNK UNK, UNK
     Route: 065
     Dates: start: 20100915
  3. GABAPENTIN. [Concomitant]
     Active Substance: GABAPENTIN
     Dosage: 300 MG, BID
     Route: 065
     Dates: start: 20130521
  4. ISATUXIMAB [Suspect]
     Active Substance: ISATUXIMAB
     Indication: PLASMA CELL MYELOMA
     Dosage: 10 MG/KG, QOW
     Dates: start: 20190723, end: 20190723
  5. DEXAMETHASONE. [Suspect]
     Active Substance: DEXAMETHASONE
     Dosage: 40 MG, QW
     Route: 048
     Dates: start: 20150519, end: 20150519
  6. LENALIDOMIDE [Suspect]
     Active Substance: LENALIDOMIDE
     Dosage: 25 MG, QD
     Route: 048
     Dates: start: 20150519, end: 20150601
  7. VITAMINS NOS [Concomitant]
     Active Substance: VITAMINS
     Indication: PROPHYLAXIS
     Dosage: UNK UNK, QD
     Route: 048
     Dates: start: 20100915
  8. ASPIRIN [ACETYLSALICYLIC ACID] [Concomitant]
     Active Substance: ASPIRIN
     Indication: PROPHYLAXIS
     Dosage: 81 MG, QD
     Route: 048
     Dates: start: 20111108
  9. DEXAMETHASONE. [Suspect]
     Active Substance: DEXAMETHASONE
     Indication: PLASMA CELL MYELOMA
     Dosage: 40 MG, QOW
     Route: 048
     Dates: start: 20190723, end: 20190723
  10. ZOLPIDEM TARTRATE. [Concomitant]
     Active Substance: ZOLPIDEM TARTRATE
     Dosage: 1 DF, PRN
     Route: 065
     Dates: start: 20110803
  11. LENALIDOMIDE [Suspect]
     Active Substance: LENALIDOMIDE
     Indication: PLASMA CELL MYELOMA
     Dosage: 25 MG, QD
     Route: 048

REACTIONS (3)
  - Pneumonia [Recovering/Resolving]
  - Enterocolitis [Recovered/Resolved]
  - Pneumonia [Recovered/Resolved]

NARRATIVE: CASE EVENT DATE: 20190723
